FAERS Safety Report 16127266 (Version 1)
Quarter: 2019Q1

REPORT INFORMATION
  Report Type: Spontaneous
  Country: US (occurrence: US)
  Receive Date: 20190328
  Receipt Date: 20190328
  Transmission Date: 20190418
  Serious: Yes (Other)
  Sender: FDA-Public Use
  Company Number: US-SA-2019SA085519

PATIENT
  Age: 66 Year
  Sex: Male
  Weight: 102.04 kg

DRUGS (10)
  1. AMLODIPINE BESYLATE. [Concomitant]
     Active Substance: AMLODIPINE BESYLATE
  2. TRULICITY [Concomitant]
     Active Substance: DULAGLUTIDE
  3. HYDROXYZINE HYDROCHLORIDE. [Concomitant]
     Active Substance: HYDROXYZINE HYDROCHLORIDE
  4. PRALUENT [Suspect]
     Active Substance: ALIROCUMAB
     Indication: DERMATITIS ATOPIC
     Dosage: 75 MG, QOW
     Dates: start: 20190207
  5. HUMALOG [Concomitant]
     Active Substance: INSULIN LISPRO
  6. DUPIXENT [Concomitant]
     Active Substance: DUPILUMAB
  7. NUCYNTA [Concomitant]
     Active Substance: TAPENTADOL HYDROCHLORIDE
  8. JARDIANCE [Concomitant]
     Active Substance: EMPAGLIFLOZIN
  9. VITAMIN B12 [Concomitant]
     Active Substance: CYANOCOBALAMIN
  10. JANUMET [Concomitant]
     Active Substance: METFORMIN HYDROCHLORIDE\SITAGLIPTIN PHOSPHATE

REACTIONS (3)
  - Product use in unapproved indication [Unknown]
  - Eye infection [Recovered/Resolved]
  - Retinal tear [Recovered/Resolved]

NARRATIVE: CASE EVENT DATE: 2019
